FAERS Safety Report 5939796-6 (Version None)
Quarter: 2008Q4

REPORT INFORMATION
  Report Type: 
  Country: None (occurrence: None)
  Receive Date: 20081031
  Receipt Date: 20081031
  Transmission Date: 20090506
  Serious: Yes (Life-Threatening, Hospitalization, Other)
  Sender: FDA-Public Use
  Company Number: None

PATIENT
  Age: 27 Year
  Sex: Male
  Weight: 86.1834 kg

DRUGS (2)
  1. GABAPENTIN [Suspect]
     Indication: AFFECTIVE DISORDER
     Dosage: 4000MG 2-3 A DAY PO
     Route: 048
  2. NEURONTIN [Suspect]
     Indication: PAIN

REACTIONS (12)
  - ALCOHOL USE [None]
  - DELUSION [None]
  - DRUG ABUSE [None]
  - EMOTIONAL DISORDER [None]
  - FEELING OF DESPAIR [None]
  - HOMICIDAL IDEATION [None]
  - HOSTILITY [None]
  - LEGAL PROBLEM [None]
  - LOSS OF CONSCIOUSNESS [None]
  - PARANOIA [None]
  - SUICIDAL IDEATION [None]
  - THINKING ABNORMAL [None]
